FAERS Safety Report 17671082 (Version 4)
Quarter: 2020Q3

REPORT INFORMATION
  Report Type: Report from Study
  Country: None (occurrence: CH)
  Receive Date: 20200415
  Receipt Date: 20200813
  Transmission Date: 20201102
  Serious: Yes (Hospitalization, Other)
  Sender: FDA-Public Use
  Company Number: CH-ABBVIE-20K-151-3364060-00

PATIENT
  Age: 77 Year
  Sex: Male
  Weight: 70.5 kg

DRUGS (26)
  1. DUODOPA [Suspect]
     Active Substance: CARBIDOPA\LEVODOPA
     Dosage: MD: MISSING; CR DAY: 2.5 ML/H; CR NIGHT: 1.3 ML/H; ED: 1.0 ML/H, 24H THERAPY
     Route: 050
     Dates: start: 20191223, end: 20191223
  2. DUODOPA [Suspect]
     Active Substance: CARBIDOPA\LEVODOPA
     Dosage: MD: UNKNOWN, CRD: 2.9 ML/H, CONTINUOUS RATE NIGHT: 1.3 ML/H ED: 1.0 ML/H  24H THERAPY
     Route: 050
     Dates: start: 20191226, end: 20191231
  3. ATORVASTATIN SANDOZ [Concomitant]
     Active Substance: ATORVASTATIN
     Indication: PRODUCT USED FOR UNKNOWN INDICATION
  4. MAGNESIOCARD [Concomitant]
     Active Substance: MAGNESIUM ASPARTATE HYDROCHLORIDE
     Indication: PRODUCT USED FOR UNKNOWN INDICATION
  5. DUODOPA [Suspect]
     Active Substance: CARBIDOPA\LEVODOPA
     Dosage: MD: MISSING; CR DAY: 2.8 ML/H; CR NIGHT: 1.3 ML/H; ED: 1.0 ML/H 24H THERAPY
     Route: 050
     Dates: start: 20191225, end: 20191225
  6. VITAMIN D3 STREULI [Concomitant]
     Active Substance: CHOLECALCIFEROL
     Indication: PROPHYLAXIS
     Dosage: 4000 IU/ML ? 1.4ML
  7. REQUIP [Concomitant]
     Active Substance: ROPINIROLE HYDROCHLORIDE
     Indication: PRODUCT USED FOR UNKNOWN INDICATION
  8. NOPIL FORTE [Concomitant]
     Active Substance: SULFAMETHOXAZOLE\TRIMETHOPRIM
     Indication: PRODUCT USED FOR UNKNOWN INDICATION
     Dosage: 800/160MG
     Dates: start: 20200627
  9. DUODOPA [Suspect]
     Active Substance: CARBIDOPA\LEVODOPA
     Dosage: MD 3 ML, CONTINUOUS RATE?DAY 3 ML/H, CRN 1.3 ML/H, EXTRA DOSE 0.5 ML, LOCK TIME 0
     Route: 050
     Dates: start: 20191231
  10. SEROQUEL [Suspect]
     Active Substance: QUETIAPINE FUMARATE
     Indication: PRODUCT USED FOR UNKNOWN INDICATION
     Route: 065
  11. ASPIRIN CARDIO [Concomitant]
     Active Substance: ASPIRIN
     Indication: PRODUCT USED FOR UNKNOWN INDICATION
  12. DUODOPA [Suspect]
     Active Substance: CARBIDOPA\LEVODOPA
     Dosage: MD: UNKNOWN; CR DAY: 2.5 ML/H; CR NIGHT: 0.0 ML/H;ED: 1.0 ML/H, 16H THERAPY
     Route: 050
     Dates: start: 20191220, end: 20191222
  13. DUODOPA [Suspect]
     Active Substance: CARBIDOPA\LEVODOPA
     Dosage: MD 3 ML, CONTINUOUS RATE?DAY 4 ML/H, CRN 1.5 ML/H, ED 0.5 ML, LOCK TIME 0 24H THERAPY
     Route: 050
     Dates: start: 2020
  14. PANTOPRAZOL MEPHA TEVA [Concomitant]
     Indication: PRODUCT USED FOR UNKNOWN INDICATION
  15. DUODOPA [Suspect]
     Active Substance: CARBIDOPA\LEVODOPA
     Dosage: MD: UNKNOWN; CR DAY: 2.7ML/H; CR NIGHT: 1.3 ML/H; ED: 1.0 ML/H 24H THERAPY
     Route: 050
     Dates: start: 20191224, end: 20191224
  16. MIRTAZAPIN MEPHA LACTAB [Concomitant]
     Indication: PRODUCT USED FOR UNKNOWN INDICATION
     Dosage: EVENING
  17. NOVALGIN (METAMIZOLE SODIUM) [Concomitant]
     Active Substance: METAMIZOLE SODIUM
     Indication: PRODUCT USED FOR UNKNOWN INDICATION
  18. PARACETAMOL MEPHA LACTAB [Concomitant]
     Indication: PRODUCT USED FOR UNKNOWN INDICATION
  19. SERALIN MEPHA LACTAB [Concomitant]
     Indication: PRODUCT USED FOR UNKNOWN INDICATION
  20. DUODOPA [Suspect]
     Active Substance: CARBIDOPA\LEVODOPA
     Indication: PARKINSON^S DISEASE
     Dosage: MD: 0.0 ML, CRD: 2.7 ML/H, CRN: 0.0 ML/H EXTRA DOSE: 1.0 ML/H, 16H THERAPY
     Route: 050
     Dates: start: 20191217, end: 20191218
  21. ACIDUM FOLICUM STREULI [Concomitant]
     Active Substance: FOLIC ACID
     Indication: PRODUCT USED FOR UNKNOWN INDICATION
  22. MOTILIUM [Concomitant]
     Active Substance: DOMPERIDONE
     Indication: PRODUCT USED FOR UNKNOWN INDICATION
  23. PROSTAPLANT F [Concomitant]
     Indication: PRODUCT USED FOR UNKNOWN INDICATION
  24. SEQUASE [Concomitant]
     Active Substance: QUETIAPINE FUMARATE
     Indication: PRODUCT USED FOR UNKNOWN INDICATION
     Dosage: EVENING
  25. VALPROATE CHRONO ZENTIVA [Concomitant]
     Indication: PRODUCT USED FOR UNKNOWN INDICATION
     Dosage: EVENING
  26. LEVODOPA [Concomitant]
     Active Substance: LEVODOPA
     Indication: PRODUCT USED FOR UNKNOWN INDICATION
     Route: 048

REACTIONS (20)
  - Cachexia [Recovered/Resolved]
  - Mobility decreased [Recovering/Resolving]
  - Restlessness [Recovering/Resolving]
  - Burning sensation [Unknown]
  - Nausea [Recovered/Resolved]
  - Gait disturbance [Unknown]
  - Malnutrition [Unknown]
  - Vomiting [Recovered/Resolved]
  - Pain in extremity [Not Recovered/Not Resolved]
  - Decreased appetite [Recovered/Resolved]
  - Fatigue [Unknown]
  - Hallucination [Recovering/Resolving]
  - Weight decreased [Recovered/Resolved]
  - Intentional medical device removal by patient [Unknown]
  - Malaise [Recovering/Resolving]
  - Akinesia [Recovering/Resolving]
  - Confusional state [Unknown]
  - Eating disorder [Not Recovered/Not Resolved]
  - Fine motor skill dysfunction [Not Recovered/Not Resolved]
  - Muscle spasms [Recovered/Resolved]

NARRATIVE: CASE EVENT DATE: 20191218
